FAERS Safety Report 11392126 (Version 1)
Quarter: 2015Q3

REPORT INFORMATION
  Report Type: Spontaneous
  Country: IT (occurrence: None)
  Receive Date: 20150814
  Receipt Date: 20150814
  Transmission Date: 20151125
  Serious: Yes (Hospitalization)
  Sender: FDA-Public Use
  Company Number: 2015RR-101652

PATIENT
  Age: 31 Month
  Sex: Female

DRUGS (1)
  1. GABAPENTIN (GABAPENTIN) UNKNOWN [Suspect]
     Active Substance: GABAPENTIN
     Indication: DRUG ABUSE
     Route: 048
     Dates: start: 20150512, end: 20150512

REACTIONS (2)
  - Agitation [None]
  - Drug abuse [None]

NARRATIVE: CASE EVENT DATE: 20150512
